FAERS Safety Report 5551376-3 (Version None)
Quarter: 2007Q4

REPORT INFORMATION
  Report Type: 
  Country: None (occurrence: None)
  Receive Date: 20071212
  Receipt Date: 20071129
  Transmission Date: 20080405
  Serious: Yes (Hospitalization)
  Sender: FDA-Public Use
  Company Number: US-AMGEN-US216418

PATIENT
  Sex: Female

DRUGS (6)
  1. PANITUMUMAB [Suspect]
     Indication: COLORECTAL CANCER
     Route: 042
     Dates: start: 20070305, end: 20070416
  2. IRINOTECAN HCL [Suspect]
     Route: 042
     Dates: start: 20070305, end: 20070416
  3. LEUCOVORIN CALCIUM [Suspect]
     Route: 042
     Dates: start: 20070305, end: 20070416
  4. FLUOROURACIL [Suspect]
     Route: 042
     Dates: start: 20070305, end: 20070416
  5. VITAMIN CAP [Concomitant]
     Route: 048
     Dates: end: 20070316
  6. CALCIUM WITH VITAMIN D [Concomitant]
     Route: 048
     Dates: end: 20070316

REACTIONS (3)
  - DEHYDRATION [None]
  - HYPOKALAEMIA [None]
  - NAUSEA [None]
